FAERS Safety Report 4648796-8 (Version None)
Quarter: 2005Q2

REPORT INFORMATION
  Report Type: 
  Country: None (occurrence: None)
  Receive Date: 20050429
  Receipt Date: 20050422
  Transmission Date: 20051028
  Serious: Yes (Death)
  Sender: FDA-Public Use
  Company Number: US-JNJFOC-20050406079

PATIENT
  Sex: Female

DRUGS (5)
  1. LEVAQUIN [Suspect]
     Indication: BRONCHITIS
     Route: 049
  2. ^MENOPIN^ [Concomitant]
  3. ^TUSSI EX^ [Concomitant]
  4. ZYPREXA [Concomitant]
     Route: 049
  5. PAXIL [Concomitant]

REACTIONS (1)
  - CONVULSION [None]
